FAERS Safety Report 18981667 (Version 1)
Quarter: 2021Q1

REPORT INFORMATION
  Report Type: Spontaneous
  Country: US (occurrence: US)
  Receive Date: 20210308
  Receipt Date: 20210308
  Transmission Date: 20210420
  Serious: No
  Sender: FDA-Public Use
  Company Number: US-MYLANLABS-2021M1012780

PATIENT
  Sex: Female
  Weight: 126 kg

DRUGS (3)
  1. CLONIDINE TRANSDERMAL SYSTEM [Suspect]
     Active Substance: CLONIDINE
     Indication: HYPERTENSION
     Dosage: WEAR TWO PATCHES /WEEK
     Route: 062
  2. HUMULIN N [Concomitant]
     Active Substance: INSULIN HUMAN
     Dosage: UNK
  3. LEVOTHYROXINE SODIUM. [Concomitant]
     Active Substance: LEVOTHYROXINE SODIUM
     Dosage: 2 DOSAGE FORM, QD

REACTIONS (3)
  - Balance disorder [Unknown]
  - Dizziness [Unknown]
  - Coordination abnormal [Unknown]
